FAERS Safety Report 5955683-1 (Version None)
Quarter: 2008Q4

REPORT INFORMATION
  Report Type: 
  Country: None (occurrence: None)
  Receive Date: 20081112
  Receipt Date: 20081031
  Transmission Date: 20090506
  Serious: Yes (Hospitalization)
  Sender: FDA-Public Use
  Company Number: GXKR2008JP10424

PATIENT
  Age: 40 Year
  Sex: Male

DRUGS (4)
  1. PREDNISOLONE [Suspect]
     Indication: IMMUNOSUPPRESSANT DRUG THERAPY
     Dosage: 17.5 MG, ORAL
     Route: 048
  2. MYCOPHENOLATE MOFETIL [Suspect]
     Indication: IMMUNOSUPPRESSANT DRUG THERAPY
     Dosage: 1500 MG
  3. TACROLIMUS [Suspect]
     Indication: IMMUNOSUPPRESSANT DRUG THERAPY
     Dosage: 8 MG
  4. MIZORIBINE (MIZORIBINE) [Suspect]
     Indication: IMMUNOSUPPRESSANT DRUG THERAPY
     Dosage: 125 MG

REACTIONS (15)
  - ANAEMIA [None]
  - BLOOD CREATININE INCREASED [None]
  - BLOOD UREA INCREASED [None]
  - CULTURE POSITIVE [None]
  - DIABETES MELLITUS [None]
  - ECTHYMA [None]
  - FOLLICULITIS [None]
  - GANGRENE [None]
  - HERPES ZOSTER [None]
  - HYPERURICAEMIA [None]
  - HYPOGAMMAGLOBULINAEMIA [None]
  - HYPOPROTEINAEMIA [None]
  - LEUKOPENIA [None]
  - PSEUDOMONAS INFECTION [None]
  - STAPHYLOCOCCAL INFECTION [None]
